FAERS Safety Report 14789822 (Version 1)
Quarter: 2018Q2

REPORT INFORMATION
  Report Type: Spontaneous
  Country: GB (occurrence: GB)
  Receive Date: 20180423
  Receipt Date: 20180423
  Transmission Date: 20180711
  Serious: Yes (Hospitalization, Disabling, Other)
  Sender: FDA-Public Use
  Company Number: GB-ELI_LILLY_AND_COMPANY-GB201804006209

PATIENT
  Age: 50 Year
  Sex: Male
  Weight: 76.2 kg

DRUGS (1)
  1. HUMAN INSULIN [Suspect]
     Active Substance: INSULIN HUMAN
     Indication: PRODUCT USED FOR UNKNOWN INDICATION
     Dosage: UNK UNK, UNKNOWN
     Route: 051
     Dates: end: 1982

REACTIONS (5)
  - Feeling abnormal [Unknown]
  - Formication [Unknown]
  - Pruritus generalised [Not Recovered/Not Resolved]
  - Burning sensation [Unknown]
  - Reaction to excipient [Unknown]

NARRATIVE: CASE EVENT DATE: 1998
